FAERS Safety Report 8119460-8 (Version None)
Quarter: 2012Q1

REPORT INFORMATION
  Report Type: 
  Country: None (occurrence: None)
  Receive Date: 20120207
  Receipt Date: 20120125
  Transmission Date: 20120608
  Serious: Yes (Hospitalization, Other)
  Sender: FDA-Public Use
  Company Number: PHHY2012PL007431

PATIENT
  Age: 27 Year
  Sex: Male

DRUGS (9)
  1. MYCOPHENOLIC ACID [Suspect]
     Indication: RENAL TRANSPLANT
     Dosage: UNK UKN, UNK
  2. DOXAZOSIN [Concomitant]
     Dosage: UNK UKN, UNK
  3. METOPROLOL [Concomitant]
  4. CYCLOSPORINE [Suspect]
     Indication: RENAL TRANSPLANT
     Dosage: UNK UKN, UNK
  5. RAMIPRIL [Concomitant]
     Dosage: UNK UKN, UNK
  6. MYCOPHENOLIC ACID [Suspect]
     Dosage: 180 MG, DAILY
  7. CLONIDINE [Concomitant]
     Dosage: UNK UKN, UNK
  8. SULFONAMIDES, UREA DERIVATIVES [Concomitant]
     Dosage: UNK UKN, UNK
  9. PREDNISONE [Concomitant]
     Indication: RENAL TRANSPLANT
     Dosage: UNK UKN, UNK

REACTIONS (8)
  - NEPHROPATHY TOXIC [None]
  - OLIGURIA [None]
  - VASCULAR RESISTANCE SYSTEMIC INCREASED [None]
  - COMPLICATIONS OF TRANSPLANTED KIDNEY [None]
  - DRUG LEVEL FLUCTUATING [None]
  - LEUKOPENIA [None]
  - KIDNEY TRANSPLANT REJECTION [None]
  - TOXICITY TO VARIOUS AGENTS [None]
